FAERS Safety Report 21922462 (Version 1)
Quarter: 2023Q1

REPORT INFORMATION
  Report Type: Report from Study
  Country: US (occurrence: US)
  Receive Date: 20230128
  Receipt Date: 20230128
  Transmission Date: 20230418
  Serious: Yes (Other)
  Sender: FDA-Public Use
  Company Number: US-ABBVIE-4285350

PATIENT
  Sex: Female

DRUGS (1)
  1. RINVOQ [Suspect]
     Active Substance: UPADACITINIB
     Indication: Rheumatoid arthritis
     Route: 058
     Dates: start: 20220720

REACTIONS (2)
  - Arthrodesis [Unknown]
  - Stress [Recovered/Resolved]
